FAERS Safety Report 17248408 (Version 2)
Quarter: 2020Q1

REPORT INFORMATION
  Report Type: Report from Study
  Country: AR (occurrence: AR)
  Receive Date: 20200108
  Receipt Date: 20200207
  Transmission Date: 20200409
  Serious: Yes (Hospitalization, Other)
  Sender: FDA-Public Use
  Company Number: PHHY2018AR033525

PATIENT
  Sex: Female

DRUGS (5)
  1. DIOVAN [Suspect]
     Active Substance: VALSARTAN
     Dosage: 0.5 DF (320 MG), BID
     Route: 065
  2. DIOVAN [Suspect]
     Active Substance: VALSARTAN
     Dosage: 80 MG, BID (ONE IN THE MORNING AND ONE IN THE EVENING )
     Route: 065
  3. PARACETAMOL [Concomitant]
     Active Substance: ACETAMINOPHEN
     Indication: FIBROMYALGIA
     Dosage: UNK
     Route: 065
     Dates: start: 2019
  4. DIOVAN [Suspect]
     Active Substance: VALSARTAN
     Indication: HYPERTENSION
     Dosage: 80 MG, QD (MORE THAN 20 YEARS AGO)
     Route: 065
  5. DIOVAN [Suspect]
     Active Substance: VALSARTAN
     Dosage: 0.5 DF (160 MG), BID
     Route: 065

REACTIONS (16)
  - Varicose vein [Recovering/Resolving]
  - Thrombosis [Recovered/Resolved]
  - Fibromyalgia [Unknown]
  - Wrong technique in product usage process [Unknown]
  - Fear of disease [Recovered/Resolved]
  - Insomnia [Recovered/Resolved]
  - Inappropriate schedule of product administration [Unknown]
  - Blood pressure increased [Recovered/Resolved]
  - Memory impairment [Unknown]
  - Product prescribing error [Unknown]
  - Fear [Recovered/Resolved]
  - Peripheral swelling [Unknown]
  - Fear of disease [Recovered/Resolved]
  - Pain [Not Recovered/Not Resolved]
  - Headache [Recovering/Resolving]
  - Muscle contracture [Recovering/Resolving]

NARRATIVE: CASE EVENT DATE: 2019
